FAERS Safety Report 19898146 (Version 1)
Quarter: 2021Q3

REPORT INFORMATION
  Report Type: Spontaneous
  Country: US (occurrence: US)
  Receive Date: 20210930
  Receipt Date: 20210930
  Transmission Date: 20211014
  Serious: No
  Sender: FDA-Public Use
  Company Number: US-BAUSCH-BL-2021-032166

PATIENT
  Sex: Male

DRUGS (1)
  1. SECONAL SODIUM [Suspect]
     Active Substance: SECOBARBITAL SODIUM
     Indication: PRODUCT USED FOR UNKNOWN INDICATION
     Route: 065

REACTIONS (4)
  - Product dose omission issue [Unknown]
  - Feeling abnormal [Unknown]
  - Product availability issue [Unknown]
  - Insomnia [Unknown]
